FAERS Safety Report 7455866-8 (Version None)
Quarter: 2011Q2

REPORT INFORMATION
  Report Type: 
  Country: None (occurrence: None)
  Receive Date: 20110503
  Receipt Date: 20110427
  Transmission Date: 20111010
  Serious: Yes (Other)
  Sender: FDA-Public Use
  Company Number: A0915082A

PATIENT
  Age: 46 Year
  Sex: Female
  Weight: 83.2 kg

DRUGS (8)
  1. VENTOLIN [Concomitant]
  2. LISINOPRIL [Concomitant]
  3. ADVAIR DISKUS 100/50 [Suspect]
     Dosage: 1PUFF PER DAY
     Route: 055
     Dates: start: 20110101
  4. CITALOPRAM [Concomitant]
  5. KLONOPIN [Concomitant]
  6. ALBUTEROL [Concomitant]
     Indication: ASTHMA
  7. TRAZODONE HCL [Concomitant]
  8. ADVAIR DISKUS 100/50 [Suspect]
     Indication: ASTHMA
     Dosage: 1PUFF TWICE PER DAY
     Route: 055
     Dates: start: 20000101, end: 20110101

REACTIONS (7)
  - ANXIETY [None]
  - NAUSEA [None]
  - MALAISE [None]
  - PNEUMONIA [None]
  - COUGH [None]
  - CHEST DISCOMFORT [None]
  - CHEST PAIN [None]
